FAERS Safety Report 4782838-4 (Version None)
Quarter: 2005Q3

REPORT INFORMATION
  Report Type: 
  Country: None (occurrence: None)
  Receive Date: 20050914
  Receipt Date: 20050608
  Transmission Date: 20060218
  Serious: Yes (Hospitalization)
  Sender: FDA-Public Use
  Company Number: 163-20785-05060125

PATIENT
  Age: 61 Year
  Sex: Male

DRUGS (2)
  1. THALOMID [Suspect]
     Indication: MULTIPLE MYELOMA
     Dosage: 200 MG, DAILY, ORAL;  100 MG, DAILY, ORAL
     Route: 048
     Dates: start: 20040902, end: 20050101
  2. THALOMID [Suspect]
     Indication: MULTIPLE MYELOMA
     Dosage: 200 MG, DAILY, ORAL;  100 MG, DAILY, ORAL
     Route: 048
     Dates: start: 20050101

REACTIONS (2)
  - ASTHENIA [None]
  - DEHYDRATION [None]
